FAERS Safety Report 15489453 (Version 1)
Quarter: 2018Q4

REPORT INFORMATION
  Report Type: Spontaneous
  Country: CN (occurrence: CN)
  Receive Date: 20181011
  Receipt Date: 20181011
  Transmission Date: 20190205
  Serious: Yes (Life-Threatening, Hospitalization)
  Sender: FDA-Public Use
  Company Number: CN-PFIZER INC-2018406537

PATIENT
  Age: 72 Year
  Sex: Male

DRUGS (3)
  1. PREDNISONE ACETATE [Concomitant]
     Active Substance: PREDNISONE ACETATE
     Indication: GOUT
     Dosage: 15 MG, 1X/DAY
     Route: 048
     Dates: start: 20180820, end: 20180823
  2. CELECOXIB. [Suspect]
     Active Substance: CELECOXIB
     Indication: GOUT
  3. CELECOXIB. [Suspect]
     Active Substance: CELECOXIB
     Indication: ANALGESIC THERAPY
     Dosage: 0.2 G, 2X/DAY
     Route: 048
     Dates: start: 20180820, end: 20180823

REACTIONS (1)
  - Duodenal ulcer haemorrhage [Recovering/Resolving]

NARRATIVE: CASE EVENT DATE: 20180823
